FAERS Safety Report 25328818 (Version 1)
Quarter: 2025Q2

REPORT INFORMATION
  Report Type: Spontaneous
  Country: US (occurrence: US)
  Receive Date: 20250519
  Receipt Date: 20250519
  Transmission Date: 20250717
  Serious: Yes (Hospitalization)
  Sender: CHEPLAPHARM
  Company Number: US-ASTRAZENECA-202505GLO006339US

PATIENT
  Age: 71 Year
  Sex: Female

DRUGS (1)
  1. QUETIAPINE [Suspect]
     Active Substance: QUETIAPINE

REACTIONS (7)
  - Confusional state [Unknown]
  - Agitation [Unknown]
  - Gait disturbance [Unknown]
  - Muscle rigidity [Unknown]
  - Anxiety [Unknown]
  - Insomnia [Unknown]
  - Bradykinesia [Unknown]
